FAERS Safety Report 19655054 (Version 1)
Quarter: 2021Q3

REPORT INFORMATION
  Report Type: Spontaneous
  Country: US (occurrence: US)
  Receive Date: 20210804
  Receipt Date: 20210804
  Transmission Date: 20211014
  Serious: No
  Sender: FDA-Public Use
  Company Number: US-BRISTOL-MYERS SQUIBB COMPANY-BMS-2021-072293

PATIENT
  Age: 78 Year
  Sex: Male
  Weight: 95.24 kg

DRUGS (2)
  1. TORSEMIDE. [Suspect]
     Active Substance: TORSEMIDE
     Indication: PRODUCT USED FOR UNKNOWN INDICATION
     Dosage: UNK
     Route: 065
  2. ELIQUIS [Suspect]
     Active Substance: APIXABAN
     Indication: CARDIAC DISORDER
     Dosage: UNK
     Route: 065
     Dates: start: 2021

REACTIONS (4)
  - Fatigue [Unknown]
  - Weight increased [Unknown]
  - Renal disorder [Unknown]
  - Asthenia [Unknown]
